FAERS Safety Report 18665068 (Version 2)
Quarter: 2021Q1

REPORT INFORMATION
  Report Type: Spontaneous
  Country: PT (occurrence: PT)
  Receive Date: 20201225
  Receipt Date: 20210112
  Transmission Date: 20210419
  Serious: Yes (Other)
  Sender: FDA-Public Use
  Company Number: PT-ASTRAZENECA-2020SF70517

PATIENT
  Age: 30541 Day
  Sex: Female

DRUGS (1)
  1. FASLODEX [Suspect]
     Active Substance: FULVESTRANT
     Route: 030

REACTIONS (5)
  - Chest pain [Recovered/Resolved]
  - Electrocardiogram QT prolonged [Unknown]
  - Bundle branch block left [Unknown]
  - Hypertension [Unknown]
  - Cough [Recovered/Resolved]

NARRATIVE: CASE EVENT DATE: 20201216
